FAERS Safety Report 24584949 (Version 1)
Quarter: 2024Q4

REPORT INFORMATION
  Report Type: Spontaneous
  Country: JP (occurrence: JP)
  Receive Date: 20241106
  Receipt Date: 20241106
  Transmission Date: 20250115
  Serious: Yes (Hospitalization, Other)
  Sender: MERCK
  Company Number: JP-MSD-M2024-45099

PATIENT
  Age: 35 Year
  Sex: Male

DRUGS (3)
  1. KEYTRUDA [Suspect]
     Active Substance: PEMBROLIZUMAB
     Indication: Bile duct cancer stage IV
     Dosage: 200 MILLIGRAM, Q3W
     Route: 041
     Dates: start: 20240704, end: 20240905
  2. GEMCITABINE HYDROCHLORIDE [Concomitant]
     Active Substance: GEMCITABINE HYDROCHLORIDE
     Indication: Bile duct cancer stage IV
     Dosage: 1000 MILLIGRAM/SQ. METER, TWICE EVERY 3 WEEKS (DAY 1, DAY 8 ADMINISTRATION)
     Route: 041
     Dates: start: 20240704
  3. CISPLATIN [Concomitant]
     Active Substance: CISPLATIN
     Indication: Bile duct cancer stage IV
     Dosage: 25 MILLIGRAM/SQ. METER, THRICE EVERY 3 WEEKS (DAY 1, DAY 8 ADMINISTRATION)
     Route: 041
     Dates: start: 20240704

REACTIONS (2)
  - General physical health deterioration [Unknown]
  - Immune-mediated enterocolitis [Recovering/Resolving]

NARRATIVE: CASE EVENT DATE: 20240905
